FAERS Safety Report 9641521 (Version 1)
Quarter: 2013Q4

REPORT INFORMATION
  Report Type: Spontaneous
  Country: GB (occurrence: GB)
  Receive Date: 20131023
  Receipt Date: 20131023
  Transmission Date: 20140711
  Serious: Yes (Life-Threatening, Hospitalization, Other)
  Sender: FDA-Public Use
  Company Number: GB-TEVA-438263ISR

PATIENT
  Age: 76 Year
  Sex: Female

DRUGS (6)
  1. INDAPAMIDE [Suspect]
     Indication: HYPERTENSION
     Route: 048
     Dates: end: 20130831
  2. METFORMIN [Concomitant]
  3. PREGABALIN [Concomitant]
  4. GLIMEPIRIDE [Concomitant]
  5. ATORVASTATIN [Concomitant]
  6. CLENIL MODULITE [Concomitant]

REACTIONS (5)
  - Hyponatraemia [Recovered/Resolved]
  - Diarrhoea [Recovering/Resolving]
  - Syncope [Recovering/Resolving]
  - Rhabdomyolysis [Recovering/Resolving]
  - Renal failure acute [Recovering/Resolving]
